FAERS Safety Report 5752500-X (Version None)
Quarter: 2008Q2

REPORT INFORMATION
  Report Type: 
  Country: None (occurrence: None)
  Receive Date: 20080529
  Receipt Date: 20080415
  Transmission Date: 20081010
  Serious: No
  Sender: FDA-Public Use
  Company Number: US-BAYER-200810505BCC

PATIENT
  Age: 40 Year
  Sex: Female
  Weight: 51 kg

DRUGS (4)
  1. ALEVE [Suspect]
     Indication: PAIN
     Dosage: UNIT DOSE: 220 MG
     Route: 048
     Dates: start: 20080129
  2. METHADONE HCL [Concomitant]
     Dosage: TOTAL DAILY DOSE: 80 MG  UNIT DOSE: 10 MG
  3. PERCOCET [Concomitant]
  4. DIAZEPAM [Concomitant]
     Dosage: TOTAL DAILY DOSE: 20 MG  UNIT DOSE: 5 MG

REACTIONS (1)
  - DYSARTHRIA [None]
